FAERS Safety Report 18461726 (Version 1)
Quarter: 2020Q4

REPORT INFORMATION
  Report Type: Spontaneous
  Country: US (occurrence: US)
  Receive Date: 20201103
  Receipt Date: 20201103
  Transmission Date: 20210114
  Serious: No
  Sender: FDA-Public Use
  Company Number: None

PATIENT
  Sex: Male

DRUGS (1)
  1. COSENTYX [Suspect]
     Active Substance: SECUKINUMAB
     Indication: RHEUMATOID ARTHRITIS
     Route: 058
     Dates: start: 20200916, end: 20201030

REACTIONS (8)
  - Pyrexia [None]
  - Pain [None]
  - Chromaturia [None]
  - Dyspnoea [None]
  - Abdominal pain [None]
  - Chills [None]
  - Oropharyngeal pain [None]
  - Throat tightness [None]
